FAERS Safety Report 11473401 (Version 1)
Quarter: 2015Q3

REPORT INFORMATION
  Report Type: Spontaneous
  Country: US (occurrence: US)
  Receive Date: 20150908
  Receipt Date: 20150908
  Transmission Date: 20151125
  Serious: No
  Sender: FDA-Public Use
  Company Number: US-AMEDRA PHARMACEUTICALS LLC-2015AMD00078

PATIENT
  Age: 41 Year
  Sex: Female
  Weight: 53.52 kg

DRUGS (3)
  1. EPINEPHRINE. [Suspect]
     Active Substance: EPINEPHRINE
     Indication: HYPERSENSITIVITY
     Dosage: 0.30 MG, ONCE
     Route: 051
     Dates: start: 20150518, end: 20150518
  2. WELLBUTRIN [Concomitant]
     Active Substance: BUPROPION HYDROCHLORIDE
     Dosage: 200 MG, 1X/DAY
  3. DEXAMPHETAMINE [Concomitant]
     Active Substance: AMPHETAMINE
     Dosage: 10 MG, 2X/DAY

REACTIONS (2)
  - Therapeutic response decreased [Recovered/Resolved]
  - Injection site bruising [Unknown]

NARRATIVE: CASE EVENT DATE: 20150518
